FAERS Safety Report 24798220 (Version 2)
Quarter: 2025Q3

REPORT INFORMATION
  Report Type: Spontaneous
  Country: CA (occurrence: CA)
  Receive Date: 20250102
  Receipt Date: 20250826
  Transmission Date: 20251020
  Serious: Yes (Life-Threatening, Hospitalization, Disabling, Congenital Anomaly, Other)
  Sender: BRISTOL-MYERS SQUIBB COMPANY
  Company Number: CA-BRISTOL-MYERS SQUIBB COMPANY-2024-197798

PATIENT
  Age: 44 Year
  Sex: Female
  Weight: 60 kg

DRUGS (90)
  1. ORENCIA [Suspect]
     Active Substance: ABATACEPT
     Indication: Rheumatoid arthritis
  2. ORENCIA [Suspect]
     Active Substance: ABATACEPT
     Indication: Rheumatoid arthritis
  3. ORENCIA [Suspect]
     Active Substance: ABATACEPT
     Route: 042
  4. ACETAMINOPHEN [Concomitant]
     Active Substance: ACETAMINOPHEN
     Indication: Rheumatoid arthritis
     Route: 058
  5. ACETAMINOPHEN [Concomitant]
     Active Substance: ACETAMINOPHEN
     Indication: Crohn^s disease
     Route: 048
  6. ACETAMINOPHEN [Concomitant]
     Active Substance: ACETAMINOPHEN
  7. ACETAMINOPHEN\CAFFEINE\CODEINE PHOSPHATE [Concomitant]
     Active Substance: ACETAMINOPHEN\CAFFEINE\CODEINE PHOSPHATE
     Indication: Product used for unknown indication
     Route: 048
  8. ACETAMINOPHEN\OXYCODONE HYDROCHLORIDE [Concomitant]
     Active Substance: ACETAMINOPHEN\OXYCODONE HYDROCHLORIDE
     Indication: Product used for unknown indication
  9. ACETAMINOPHEN\OXYCODONE HYDROCHLORIDE [Concomitant]
     Active Substance: ACETAMINOPHEN\OXYCODONE HYDROCHLORIDE
     Route: 058
  10. ACETAMINOPHEN\OXYCODONE HYDROCHLORIDE [Concomitant]
     Active Substance: ACETAMINOPHEN\OXYCODONE HYDROCHLORIDE
     Route: 048
  11. ACTEMRA [Concomitant]
     Active Substance: TOCILIZUMAB
     Indication: Rheumatoid arthritis
     Route: 042
  12. ACTEMRA [Concomitant]
     Active Substance: TOCILIZUMAB
     Route: 058
  13. ACTEMRA [Concomitant]
     Active Substance: TOCILIZUMAB
     Route: 048
  14. ACTEMRA [Concomitant]
     Active Substance: TOCILIZUMAB
     Route: 042
  15. ACTEMRA [Concomitant]
     Active Substance: TOCILIZUMAB
     Route: 042
  16. ACTEMRA [Concomitant]
     Active Substance: TOCILIZUMAB
     Route: 042
  17. ACTEMRA [Concomitant]
     Active Substance: TOCILIZUMAB
     Route: 042
  18. ACTEMRA [Concomitant]
     Active Substance: TOCILIZUMAB
     Route: 016
  19. ADALIMUMAB [Concomitant]
     Active Substance: ADALIMUMAB
     Indication: Psoriatic arthropathy
     Route: 058
  20. ADALIMUMAB [Concomitant]
     Active Substance: ADALIMUMAB
     Indication: Rheumatoid arthritis
     Route: 058
  21. ADALIMUMAB [Concomitant]
     Active Substance: ADALIMUMAB
     Route: 058
  22. ADALIMUMAB [Concomitant]
     Active Substance: ADALIMUMAB
     Route: 042
  23. ADALIMUMAB [Concomitant]
     Active Substance: ADALIMUMAB
  24. ALENDRONATE SODIUM [Concomitant]
     Active Substance: ALENDRONATE SODIUM
     Indication: Rheumatoid arthritis
     Route: 058
  25. ALENDRONATE SODIUM [Concomitant]
     Active Substance: ALENDRONATE SODIUM
     Route: 048
  26. ALENDRONATE SODIUM [Concomitant]
     Active Substance: ALENDRONATE SODIUM
     Route: 016
  27. ALENDRONATE SODIUM [Concomitant]
     Active Substance: ALENDRONATE SODIUM
     Route: 048
  28. ALENDRONATE SODIUM\CHOLECALCIFEROL [Concomitant]
     Active Substance: ALENDRONATE SODIUM\CHOLECALCIFEROL
     Indication: Rheumatoid arthritis
     Route: 058
  29. ALENDRONIC ACID [Concomitant]
     Active Substance: ALENDRONIC ACID
     Indication: Rheumatoid arthritis
     Route: 048
  30. ALENDRONIC ACID [Concomitant]
     Active Substance: ALENDRONIC ACID
     Route: 048
  31. PREDNISONE [Concomitant]
     Active Substance: PREDNISONE
     Indication: Rheumatoid arthritis
     Route: 048
  32. PREDNISONE [Concomitant]
     Active Substance: PREDNISONE
     Indication: Condition aggravated
  33. PREDNISONE [Concomitant]
     Active Substance: PREDNISONE
     Route: 048
  34. PREDNISONE [Concomitant]
     Active Substance: PREDNISONE
  35. ARAVA [Concomitant]
     Active Substance: LEFLUNOMIDE
     Indication: Rheumatoid arthritis
     Route: 005
  36. ARAVA [Concomitant]
     Active Substance: LEFLUNOMIDE
  37. ARAVA [Concomitant]
     Active Substance: LEFLUNOMIDE
  38. ARAVA [Concomitant]
     Active Substance: LEFLUNOMIDE
  39. ARAVA [Concomitant]
     Active Substance: LEFLUNOMIDE
     Route: 048
  40. ARAVA [Concomitant]
     Active Substance: LEFLUNOMIDE
  41. ASACOL [Concomitant]
     Active Substance: MESALAMINE
     Indication: Crohn^s disease
  42. ATIVAN [Concomitant]
     Active Substance: LORAZEPAM
     Indication: Rheumatoid arthritis
  43. AZATHIOPRINE [Concomitant]
     Active Substance: AZATHIOPRINE
     Indication: Rheumatoid arthritis
     Route: 058
  44. CAFFEINE [Concomitant]
     Active Substance: CAFFEINE
     Indication: Rheumatoid arthritis
  45. CAFFEINE CITRATE [Concomitant]
     Active Substance: CAFFEINE CITRATE
     Indication: Product used for unknown indication
     Route: 048
  46. CALCIUM [Concomitant]
     Active Substance: CALCIUM
     Indication: Product used for unknown indication
  47. CELEBREX [Concomitant]
     Active Substance: CELECOXIB
     Indication: Rheumatoid arthritis
     Route: 048
  48. CELEBREX [Concomitant]
     Active Substance: CELECOXIB
     Indication: Off label use
     Route: 048
  49. CELEBREX [Concomitant]
     Active Substance: CELECOXIB
     Route: 048
  50. CELEBREX [Concomitant]
     Active Substance: CELECOXIB
  51. CELEBREX [Concomitant]
     Active Substance: CELECOXIB
  52. CELEBREX [Concomitant]
     Active Substance: CELECOXIB
  53. CELEBREX [Concomitant]
     Active Substance: CELECOXIB
     Route: 048
  54. CETIRIZINE [Concomitant]
     Active Substance: CETIRIZINE HYDROCHLORIDE
     Indication: Rheumatoid arthritis
     Route: 048
  55. CETIRIZINE [Concomitant]
     Active Substance: CETIRIZINE HYDROCHLORIDE
     Indication: Off label use
     Route: 016
  56. CETIRIZINE [Concomitant]
     Active Substance: CETIRIZINE HYDROCHLORIDE
     Route: 048
  57. CETIRIZINE [Concomitant]
     Active Substance: CETIRIZINE HYDROCHLORIDE
     Route: 048
  58. CHLORAPREP [Concomitant]
     Active Substance: CHLORHEXIDINE GLUCONATE\ISOPROPYL ALCOHOL
     Indication: Rheumatoid arthritis
  59. CHLORAPREP [Concomitant]
     Active Substance: CHLORHEXIDINE GLUCONATE\ISOPROPYL ALCOHOL
     Route: 058
  60. CHLORAPREP [Concomitant]
     Active Substance: CHLORHEXIDINE GLUCONATE\ISOPROPYL ALCOHOL
     Route: 061
  61. CHLORHEXIDINE [Concomitant]
     Active Substance: CHLORHEXIDINE
     Indication: Rheumatoid arthritis
  62. CHLORHEXIDINE [Concomitant]
     Active Substance: CHLORHEXIDINE
     Route: 058
  63. CHLORHEXIDINE [Concomitant]
     Active Substance: CHLORHEXIDINE
  64. CHLORHEXIDINE [Concomitant]
     Active Substance: CHLORHEXIDINE
     Route: 061
  65. CHLORHEXIDINE [Concomitant]
     Active Substance: CHLORHEXIDINE
     Route: 048
  66. CHOLECALCIFEROL [Concomitant]
     Active Substance: CHOLECALCIFEROL
     Indication: Rheumatoid arthritis
  67. CHOLECALCIFEROL [Concomitant]
     Active Substance: CHOLECALCIFEROL
     Route: 016
  68. CIMZIA [Concomitant]
     Active Substance: CERTOLIZUMAB PEGOL
     Indication: Rheumatoid arthritis
     Route: 005
  69. CIMZIA [Concomitant]
     Active Substance: CERTOLIZUMAB PEGOL
     Indication: Psoriasis
     Route: 058
  70. CODEINE [Concomitant]
     Active Substance: CODEINE
     Indication: Rheumatoid arthritis
  71. DICLOFENAC POTASSIUM [Concomitant]
     Active Substance: DICLOFENAC POTASSIUM
     Indication: Rheumatoid arthritis
     Route: 048
  72. DICLOFENAC POTASSIUM [Concomitant]
     Active Substance: DICLOFENAC POTASSIUM
     Route: 048
  73. DICLOFENAC POTASSIUM [Concomitant]
     Active Substance: DICLOFENAC POTASSIUM
  74. DICLOFENAC POTASSIUM [Concomitant]
     Active Substance: DICLOFENAC POTASSIUM
  75. DICLOFENAC SODIUM [Concomitant]
     Active Substance: DICLOFENAC SODIUM
     Indication: Rheumatoid arthritis
  76. DICLOFENAC SODIUM [Concomitant]
     Active Substance: DICLOFENAC SODIUM
     Route: 058
  77. DICLOFENAC SODIUM [Concomitant]
     Active Substance: DICLOFENAC SODIUM
  78. DICLOFENAC SODIUM [Concomitant]
     Active Substance: DICLOFENAC SODIUM
     Route: 047
  79. DICLOFENAC SODIUM [Concomitant]
     Active Substance: DICLOFENAC SODIUM
     Route: 047
  80. ERELZI [Concomitant]
     Active Substance: ETANERCEPT-SZZS
     Indication: Rheumatoid arthritis
     Route: 058
  81. ERELZI [Concomitant]
     Active Substance: ETANERCEPT-SZZS
  82. ERELZI [Concomitant]
     Active Substance: ETANERCEPT-SZZS
     Route: 058
  83. FLUOROMETHOLONE [Concomitant]
     Active Substance: FLUOROMETHOLONE
     Indication: Product used for unknown indication
     Route: 047
  84. RITUXIMAB [Concomitant]
     Active Substance: RITUXIMAB
     Indication: Rheumatoid arthritis
     Route: 042
  85. RITUXIMAB [Concomitant]
     Active Substance: RITUXIMAB
     Route: 016
  86. RITUXIMAB [Concomitant]
     Active Substance: RITUXIMAB
     Route: 058
  87. RITUXIMAB [Concomitant]
     Active Substance: RITUXIMAB
     Route: 042
  88. RITUXIMAB [Concomitant]
     Active Substance: RITUXIMAB
  89. ALBUTEROL SULFATE [Concomitant]
     Active Substance: ALBUTEROL SULFATE
     Indication: Product used for unknown indication
  90. VITAMIN C [Concomitant]
     Active Substance: ASCORBIC ACID
     Indication: Product used for unknown indication

REACTIONS (150)
  - Abdominal discomfort [Unknown]
  - Abdominal pain [Unknown]
  - Abdominal pain upper [Unknown]
  - Adjustment disorder with depressed mood [Unknown]
  - Alopecia [Unknown]
  - Amnesia [Unknown]
  - Anti-cyclic citrullinated peptide antibody positive [Unknown]
  - Anxiety [Unknown]
  - Arthralgia [Unknown]
  - Arthritis [Unknown]
  - Asthenia [Unknown]
  - Asthma [Unknown]
  - Autoimmune disorder [Unknown]
  - Blister [Unknown]
  - Blood cholesterol increased [Unknown]
  - Bone erosion [Unknown]
  - Breast cancer stage III [Unknown]
  - Bursitis [Unknown]
  - C-reactive protein abnormal [Unknown]
  - Chest pain [Unknown]
  - Colitis ulcerative [Unknown]
  - Condition aggravated [Unknown]
  - Confusional state [Unknown]
  - Contusion [Unknown]
  - Crohn^s disease [Unknown]
  - Decreased appetite [Unknown]
  - Deep vein thrombosis postoperative [Unknown]
  - Delirium [Unknown]
  - Depression [Unknown]
  - Diarrhoea [Unknown]
  - Discomfort [Unknown]
  - Dislocation of vertebra [Unknown]
  - Dizziness [Unknown]
  - Drug hypersensitivity [Unknown]
  - Drug tolerance decreased [Unknown]
  - Dry mouth [Unknown]
  - Duodenal ulcer perforation [Unknown]
  - Dyspepsia [Unknown]
  - Dyspnoea [Unknown]
  - Ear infection [Unknown]
  - Exostosis [Unknown]
  - Facet joint syndrome [Unknown]
  - Fatigue [Unknown]
  - Feeling hot [Unknown]
  - Fibromyalgia [Unknown]
  - Folliculitis [Unknown]
  - Foot deformity [Unknown]
  - Frequent bowel movements [Unknown]
  - Gait disturbance [Unknown]
  - Gastrointestinal disorder [Unknown]
  - General physical health deterioration [Unknown]
  - Glossodynia [Unknown]
  - Grip strength decreased [Unknown]
  - Hand deformity [Unknown]
  - Headache [Unknown]
  - Helicobacter infection [Unknown]
  - Hepatic cirrhosis [Unknown]
  - Hepatic enzyme increased [Unknown]
  - Hypercholesterolaemia [Unknown]
  - Hypersensitivity [Unknown]
  - Hypertension [Unknown]
  - Hypoaesthesia [Unknown]
  - Ill-defined disorder [Unknown]
  - Impaired healing [Unknown]
  - Infection [Unknown]
  - Inflammation [Unknown]
  - Infusion related reaction [Unknown]
  - Injury [Unknown]
  - Insomnia [Unknown]
  - Irritable bowel syndrome [Unknown]
  - Joint range of motion decreased [Unknown]
  - Joint stiffness [Unknown]
  - Liver disorder [Unknown]
  - Liver injury [Unknown]
  - Lower respiratory tract infection [Unknown]
  - Lupus vulgaris [Unknown]
  - Lupus-like syndrome [Unknown]
  - Muscular weakness [Unknown]
  - Pancreatitis [Unknown]
  - Pemphigus [Unknown]
  - Pericarditis [Unknown]
  - Pneumonia [Unknown]
  - Porphyria acute [Unknown]
  - Psoriatic arthropathy [Unknown]
  - Pulmonary fibrosis [Unknown]
  - Rectal haemorrhage [Unknown]
  - Respiratory disorder [Unknown]
  - Retinitis [Unknown]
  - Rheumatoid arthritis [Unknown]
  - Sleep disorder due to a general medical condition [Unknown]
  - Adverse event [Unknown]
  - Hospitalisation [Unknown]
  - Functional gastrointestinal disorder [Unknown]
  - Arthropathy [Unknown]
  - Joint swelling [Unknown]
  - Laryngitis [Unknown]
  - Lip dry [Unknown]
  - Loss of personal independence in daily activities [Unknown]
  - Lower limb fracture [Unknown]
  - Lung disorder [Unknown]
  - Malaise [Unknown]
  - Memory impairment [Unknown]
  - Migraine [Unknown]
  - Mobility decreased [Unknown]
  - Muscle injury [Unknown]
  - Muscle spasms [Unknown]
  - Musculoskeletal pain [Unknown]
  - Musculoskeletal stiffness [Unknown]
  - Nasopharyngitis [Unknown]
  - Nausea [Unknown]
  - Night sweats [Unknown]
  - Obesity [Unknown]
  - Oedema [Unknown]
  - Oedema peripheral [Unknown]
  - Osteoarthritis [Unknown]
  - Osteoporosis [Unknown]
  - Pain [Unknown]
  - Pain in extremity [Unknown]
  - Paraesthesia [Unknown]
  - Peripheral swelling [Unknown]
  - Peripheral venous disease [Unknown]
  - Prescribed underdose [Unknown]
  - Pruritus [Unknown]
  - Pyrexia [Unknown]
  - Rheumatic fever [Unknown]
  - Road traffic accident [Unknown]
  - Sciatica [Unknown]
  - Sinusitis [Unknown]
  - Sleep disorder [Unknown]
  - Sleep disorder due to general medical condition, insomnia type [Unknown]
  - Stomatitis [Unknown]
  - Swelling [Unknown]
  - Synovitis [Unknown]
  - Systemic lupus erythematosus [Unknown]
  - Tachycardia [Unknown]
  - Therapeutic product effect decreased [Unknown]
  - Therapeutic product effect incomplete [Unknown]
  - Thrombocytopenia [Unknown]
  - Treatment failure [Unknown]
  - Type 2 diabetes mellitus [Unknown]
  - Urticaria [Unknown]
  - Visual impairment [Unknown]
  - Vomiting [Unknown]
  - Weight decreased [Unknown]
  - Weight increased [Unknown]
  - Wheezing [Unknown]
  - White blood cell count increased [Unknown]
  - Wound [Unknown]
  - Wound infection [Unknown]
  - Walking aid user [Unknown]
